FAERS Safety Report 19888156 (Version 1)
Quarter: 2021Q3

REPORT INFORMATION
  Report Type: Spontaneous
  Country: US (occurrence: US)
  Receive Date: 20210928
  Receipt Date: 20210928
  Transmission Date: 20211014
  Serious: Yes (Other)
  Sender: FDA-Public Use
  Company Number: US-SA-2021SA315635

PATIENT
  Age: 74 Year
  Sex: Male

DRUGS (3)
  1. FLOMAX [Suspect]
     Active Substance: TAMSULOSIN HYDROCHLORIDE
     Indication: PRODUCT USED FOR UNKNOWN INDICATION
     Route: 065
  2. NINTEDANIB ESILATE [Suspect]
     Active Substance: NINTEDANIB ESYLATE
     Indication: IDIOPATHIC PULMONARY FIBROSIS
     Dosage: 200 MG, BID
     Route: 048
     Dates: start: 20210210
  3. FINASTERIDE. [Concomitant]
     Active Substance: FINASTERIDE
     Route: 065

REACTIONS (19)
  - Ocular discomfort [Unknown]
  - Faeces soft [Unknown]
  - Diarrhoea [Recovered/Resolved]
  - Fatigue [Unknown]
  - Cerebrovascular accident [Unknown]
  - Mood altered [Unknown]
  - Visual impairment [Unknown]
  - Vision blurred [Unknown]
  - Weight decreased [Unknown]
  - Abdominal pain upper [Unknown]
  - Dysgeusia [Unknown]
  - Diarrhoea [Unknown]
  - Headache [Unknown]
  - Decreased appetite [Unknown]
  - Migraine [Unknown]
  - Blood glucose abnormal [Unknown]
  - Peripheral swelling [Unknown]
  - Cough [Unknown]
  - Abdominal distension [Unknown]

NARRATIVE: CASE EVENT DATE: 2021
